FAERS Safety Report 7402710-0 (Version None)
Quarter: 2011Q1

REPORT INFORMATION
  Report Type: 
  Country: None (occurrence: None)
  Receive Date: 20110330
  Receipt Date: 20110317
  Transmission Date: 20110831
  Serious: Yes (Death)
  Sender: FDA-Public Use
  Company Number: 1000019160

PATIENT
  Age: 76 Year
  Sex: Female
  Weight: 90.4 kg

DRUGS (10)
  1. BISOPROLOL FUMARATE [Suspect]
     Dosage: 5 MG (5 MG,1 IN 1 D),ORAL
     Route: 048
     Dates: end: 20100810
  2. ASS (ACETYLSALICYILC ACID) (ACETYLSALICYLIC ACID) [Concomitant]
  3. FERRO SANOL (FERROUS SULFATE) (CAPSULES) (FERROUS SULFATE) [Concomitant]
  4. KEPPRA [Suspect]
     Dosage: 1000 MG (1000 MG,1 IN 1 D),ORAL
     Route: 048
     Dates: start: 20100805, end: 20100810
  5. ESCITALOPRAM [Suspect]
     Indication: DEPRESSION
     Dosage: 5 MG (5 MG,1 IN 1 D),ORAL ; 10 MG (10 MG,1 IN 1 D),ORAL ; 20 MG (20 MG,1 IN 1 D),ORAL
     Route: 048
     Dates: start: 20100804, end: 20100810
  6. ESCITALOPRAM [Suspect]
     Indication: DEPRESSION
     Dosage: 5 MG (5 MG,1 IN 1 D),ORAL ; 10 MG (10 MG,1 IN 1 D),ORAL ; 20 MG (20 MG,1 IN 1 D),ORAL
     Route: 048
     Dates: start: 20100720, end: 20100730
  7. ESCITALOPRAM [Suspect]
     Indication: DEPRESSION
     Dosage: 5 MG (5 MG,1 IN 1 D),ORAL ; 10 MG (10 MG,1 IN 1 D),ORAL ; 20 MG (20 MG,1 IN 1 D),ORAL
     Route: 048
     Dates: start: 20100731, end: 20100803
  8. PANTOZOL (PANTOPRAZOLE SODIUM) (PANTOPRAZOLE SODIUM) [Concomitant]
  9. TORSEMIDE [Suspect]
     Dosage: 10 MG (10 MG,1 IN 1 D),ORAL
     Route: 048
     Dates: end: 20100810
  10. MCP (METOCLOPRAMIDE) (METOCLOPRAMIDE) [Concomitant]

REACTIONS (8)
  - DIZZINESS [None]
  - LACERATION [None]
  - HYPOTENSION [None]
  - FALL [None]
  - CEREBRAL HAEMORRHAGE [None]
  - DRUG INTERACTION [None]
  - URINARY TRACT INFECTION [None]
  - DEPRESSED LEVEL OF CONSCIOUSNESS [None]
